FAERS Safety Report 6818798-1 (Version None)
Quarter: 2010Q2

REPORT INFORMATION
  Report Type: 
  Country: None (occurrence: None)
  Receive Date: 20100630
  Receipt Date: 20100616
  Transmission Date: 20101027
  Serious: Yes (Hospitalization)
  Sender: FDA-Public Use
  Company Number: 004185

PATIENT
  Age: 54 Year
  Sex: Male

DRUGS (1)
  1. PLETAL [Suspect]
     Dosage: 100 MG, BID ORAL
     Route: 048
     Dates: start: 20070401

REACTIONS (3)
  - CHOREA [None]
  - DIABETIC COMPLICATION [None]
  - HYPERGLYCAEMIC HYPEROSMOLAR NONKETOTIC SYNDROME [None]
